FAERS Safety Report 4350783-4 (Version None)
Quarter: 2004Q2

REPORT INFORMATION
  Report Type: 
  Country: None (occurrence: None)
  Receive Date: 20040430
  Receipt Date: 20040302
  Transmission Date: 20050107
  Serious: Yes (Other)
  Sender: FDA-Public Use
  Company Number: JP-ROCHE-360593

PATIENT
  Age: 28 Year
  Sex: Male

DRUGS (5)
  1. TAMIFLU [Suspect]
     Route: 048
     Dates: start: 20040116, end: 20040118
  2. PERIACTIN [Concomitant]
     Route: 048
     Dates: start: 20040116, end: 20040118
  3. LYSOZYME HYDROCHLORIDE [Concomitant]
     Indication: INFLAMMATION
     Route: 048
     Dates: start: 20040116, end: 20040118
  4. COLDRIN [Concomitant]
     Indication: COUGH
     Route: 048
     Dates: start: 20040116, end: 20040118
  5. PYRINAZIN [Concomitant]
     Indication: ANTIPYRESIS
     Route: 048
     Dates: start: 20040116, end: 20040118

REACTIONS (7)
  - ALANINE AMINOTRANSFERASE INCREASED [None]
  - ARTHRALGIA [None]
  - DISEASE PROGRESSION [None]
  - GAMMA-GLUTAMYLTRANSFERASE INCREASED [None]
  - HENOCH-SCHONLEIN PURPURA [None]
  - HEPATIC FUNCTION ABNORMAL [None]
  - VASCULITIS [None]
